FAERS Safety Report 8270081-6 (Version None)
Quarter: 2012Q1

REPORT INFORMATION
  Report Type: 
  Country: None (occurrence: None)
  Receive Date: 20120327
  Receipt Date: 20100514
  Transmission Date: 20120608
  Serious: Yes (Other)
  Sender: FDA-Public Use
  Company Number: PHEH2010US01950

PATIENT
  Age: 53 Year
  Sex: Male

DRUGS (6)
  1. GLEEVEC [Suspect]
     Indication: CHRONIC MYELOID LEUKAEMIA
     Dosage: 400 MG, DAILY, ORAL
     Route: 048
     Dates: start: 20100101
  2. CRESTOR [Concomitant]
  3. METOPROLOL-SLOW RELEASE (METOPROLOL TARTRATE) [Concomitant]
  4. MULTIVITAMIN ^LAPPE^ (VITAMINS NOS) [Concomitant]
  5. ASPIRIN [Concomitant]
  6. ZYRTEC [Concomitant]

REACTIONS (9)
  - CONFUSIONAL STATE [None]
  - EYE SWELLING [None]
  - FOLLICULITIS [None]
  - ABDOMINAL DISCOMFORT [None]
  - LACRIMATION INCREASED [None]
  - FALL [None]
  - DIARRHOEA [None]
  - EAR PAIN [None]
  - VISUAL IMPAIRMENT [None]
